FAERS Safety Report 7012133-4 (Version None)
Quarter: 2010Q3

REPORT INFORMATION
  Report Type: 
  Country: None (occurrence: None)
  Receive Date: 20100924
  Receipt Date: 20100914
  Transmission Date: 20110219
  Serious: Yes (Other)
  Sender: FDA-Public Use
  Company Number: US-MYLANLABS-2010S1016109

PATIENT
  Age: 25 Year
  Sex: Female

DRUGS (2)
  1. AMNESTEEM [Suspect]
     Route: 048
     Dates: start: 20100409, end: 20100501
  2. AMNESTEEM [Suspect]
     Route: 048
     Dates: start: 20100601, end: 20100614

REACTIONS (4)
  - ABDOMINAL PAIN [None]
  - ABORTION INDUCED [None]
  - ANXIETY [None]
  - DRUG EXPOSURE BEFORE PREGNANCY [None]
